FAERS Safety Report 20404750 (Version 1)
Quarter: 2022Q1

REPORT INFORMATION
  Report Type: Spontaneous
  Country: US (occurrence: None)
  Receive Date: 20220128
  Receipt Date: 20220128
  Transmission Date: 20220423
  Serious: Yes (Hospitalization)
  Sender: FDA-Public Use
  Company Number: None

PATIENT
  Age: 68 Year
  Sex: Female

DRUGS (1)
  1. JADENU [Suspect]
     Active Substance: DEFERASIROX
     Dosage: FREQUENCY : TWICE A DAY;?
     Route: 048
     Dates: start: 201812

REACTIONS (8)
  - Constipation [None]
  - Blood pressure increased [None]
  - Nocturia [None]
  - Headache [None]
  - Therapy interrupted [None]
  - Fall [None]
  - Lip injury [None]
  - Off label use [None]

NARRATIVE: CASE EVENT DATE: 20220105
